FAERS Safety Report 7762511-0 (Version None)
Quarter: 2011Q3

REPORT INFORMATION
  Report Type: 
  Country: None (occurrence: None)
  Receive Date: 20110920
  Receipt Date: 20110906
  Transmission Date: 20111222
  Serious: No
  Sender: FDA-Public Use
  Company Number: US-MYLANLABS-2011S1017423

PATIENT
  Sex: Female

DRUGS (2)
  1. TRAZODONE HCL [Suspect]
     Indication: DEPRESSION
     Route: 048
     Dates: start: 20110301
  2. LEVOTHROID [Concomitant]

REACTIONS (1)
  - DYSPHAGIA [None]
